FAERS Safety Report 4673326-4 (Version None)
Quarter: 2005Q2

REPORT INFORMATION
  Report Type: 
  Country: None (occurrence: None)
  Receive Date: 20050524
  Receipt Date: 20050524
  Transmission Date: 20051028
  Serious: Yes (Life-Threatening, Hospitalization)
  Sender: FDA-Public Use
  Company Number: None

PATIENT
  Age: 55 Year
  Sex: Male
  Weight: 119 kg

DRUGS (13)
  1. SIMVASTATIN [Suspect]
     Indication: HYPERLIPIDAEMIA
     Dosage: QHS ORAL
     Route: 048
  2. GEMFIBROZIL [Suspect]
     Dosage: 600MG BID ORAL
     Route: 048
  3. BUPROPION HCL [Concomitant]
  4. CITALOPRAM HYDROBROMIDE [Concomitant]
  5. LASIX [Concomitant]
  6. ATENOLOL [Concomitant]
  7. FELODIPINE [Concomitant]
  8. IRBESARTAN [Concomitant]
  9. ROSIGLITAZONE [Concomitant]
  10. ASPIRIN [Concomitant]
  11. TYLENOL (CAPLET) [Concomitant]
  12. REGULAR INSULIN [Concomitant]
  13. NPH INSULIN [Concomitant]

REACTIONS (7)
  - ASPARTATE AMINOTRANSFERASE INCREASED [None]
  - HAEMODIALYSIS [None]
  - RENAL FAILURE ACUTE [None]
  - RENAL TUBULAR NECROSIS [None]
  - RHABDOMYOLYSIS [None]
  - TRANSAMINASES INCREASED [None]
  - VIRAL MYOSITIS [None]
